FAERS Safety Report 6904573-6 (Version None)
Quarter: 2010Q3

REPORT INFORMATION
  Report Type: 
  Country: None (occurrence: None)
  Receive Date: 20100804
  Receipt Date: 20090616
  Transmission Date: 20110219
  Serious: Yes (Other)
  Sender: FDA-Public Use
  Company Number: US-PFIZER INC-2009172236

PATIENT
  Sex: Female
  Weight: 104.31 kg

DRUGS (3)
  1. LYRICA [Suspect]
     Indication: FIBROMYALGIA
     Dosage: 150 MG, UNK
     Dates: start: 20090101
  2. ZYPREXA [Interacting]
     Indication: BIPOLAR DISORDER
     Dates: start: 20090201
  3. ADDERALL 10 [Concomitant]
     Dosage: UNK

REACTIONS (10)
  - BLISTER [None]
  - CELLULITIS [None]
  - DRUG INTERACTION [None]
  - DYSPNOEA [None]
  - ECZEMA INFECTED [None]
  - ERYTHEMA [None]
  - OEDEMA PERIPHERAL [None]
  - RASH MACULAR [None]
  - WEIGHT INCREASED [None]
  - WHEEZING [None]
